FAERS Safety Report 19101878 (Version 1)
Quarter: 2021Q2

REPORT INFORMATION
  Report Type: Report from Study
  Country: BR (occurrence: BR)
  Receive Date: 20210407
  Receipt Date: 20210407
  Transmission Date: 20210717
  Serious: Yes (Other)
  Sender: FDA-Public Use
  Company Number: BR-BRISTOL-MYERS SQUIBB COMPANY-BMS-2021-032517

PATIENT
  Age: 68 Year
  Sex: Male

DRUGS (4)
  1. TRAYENTA [Concomitant]
     Active Substance: LINAGLIPTIN
     Indication: PRODUCT USED FOR UNKNOWN INDICATION
     Dosage: UNK
     Route: 065
  2. GLIFAGE [Concomitant]
     Active Substance: METFORMIN HYDROCHLORIDE
     Indication: PRODUCT USED FOR UNKNOWN INDICATION
     Dosage: UNK
     Route: 065
  3. APIXABAN [Suspect]
     Active Substance: APIXABAN
     Indication: PRODUCT USED FOR UNKNOWN INDICATION
     Dosage: UNK
     Route: 065
  4. VECTIBIX [Suspect]
     Active Substance: PANITUMUMAB
     Indication: COLON CANCER METASTATIC
     Dosage: UNK UNK, Q2WK
     Route: 065
     Dates: start: 202010, end: 20210226

REACTIONS (11)
  - Acne [Recovering/Resolving]
  - Aphthous ulcer [Not Recovered/Not Resolved]
  - Skin haemorrhage [Recovering/Resolving]
  - Constipation [Unknown]
  - Blood disorder [Unknown]
  - Thrombosis [Unknown]
  - Epistaxis [Unknown]
  - Throat irritation [Not Recovered/Not Resolved]
  - Rash [Unknown]
  - Oral disorder [Recovering/Resolving]
  - Wound [Not Recovered/Not Resolved]

NARRATIVE: CASE EVENT DATE: 202011
